FAERS Safety Report 24294367 (Version 4)
Quarter: 2025Q2

REPORT INFORMATION
  Report Type: Report from Study
  Country: CA (occurrence: CA)
  Receive Date: 20240906
  Receipt Date: 20250521
  Transmission Date: 20250717
  Serious: Yes (Hospitalization)
  Sender: CHIESI
  Company Number: CA-Medison-000201

PATIENT
  Sex: Male
  Weight: 60 kg

DRUGS (2)
  1. LOMITAPIDE [Suspect]
     Active Substance: LOMITAPIDE
     Indication: Type IIa hyperlipidaemia
     Dosage: 10 MILLIGRAM, QD
     Route: 048
     Dates: start: 20221111
  2. LOMITAPIDE [Suspect]
     Active Substance: LOMITAPIDE
     Dosage: 20 MILLIGRAM, QD
     Route: 048
     Dates: start: 20240828

REACTIONS (5)
  - Myocardial infarction [Unknown]
  - Hospitalisation [Unknown]
  - Muscle twitching [Not Recovered/Not Resolved]
  - Muscle contractions involuntary [Not Recovered/Not Resolved]
  - Product dose omission issue [Recovered/Resolved]

NARRATIVE: CASE EVENT DATE: 20240101
